FAERS Safety Report 12994773 (Version 2)
Quarter: 2016Q4

REPORT INFORMATION
  Report Type: Report from Study
  Country: US (occurrence: US)
  Receive Date: 20161202
  Receipt Date: 20161213
  Transmission Date: 20170207
  Serious: Yes (Hospitalization)
  Sender: FDA-Public Use
  Company Number: US-ACTELION-A-NJ2016-146156

PATIENT
  Age: 3 Year
  Sex: Male

DRUGS (7)
  1. TRACLEER [Suspect]
     Active Substance: BOSENTAN
     Indication: PULMONARY HYPERTENSION
     Dosage: 31.25 MG, BID
     Route: 048
     Dates: start: 20150207
  2. TRACLEER [Suspect]
     Active Substance: BOSENTAN
     Dosage: 15.625 MG, BID
     Route: 007
     Dates: start: 20131128
  3. BUDESONIDE. [Concomitant]
     Active Substance: BUDESONIDE
     Dosage: 0.5 MG, UNK
  4. PREVACID [Concomitant]
     Active Substance: LANSOPRAZOLE
     Dosage: 15 MG, UNK
  5. ALBUTEROL. [Concomitant]
     Active Substance: ALBUTEROL
     Dosage: 90 MCG, 2 PUFFS Q 6 HRS
  6. DIURIL [Concomitant]
     Active Substance: CHLOROTHIAZIDE
     Dosage: 80 MG, QD
  7. FLOVENT [Concomitant]
     Active Substance: FLUTICASONE PROPIONATE
     Dosage: 94 MCG, 2 PUFFS QD

REACTIONS (4)
  - Tracheitis [Unknown]
  - Bloody discharge [Unknown]
  - Pyrexia [Unknown]
  - Oxygen saturation decreased [Unknown]
